FAERS Safety Report 6122003-1 (Version None)
Quarter: 2009Q1

REPORT INFORMATION
  Report Type: 
  Country: None (occurrence: None)
  Receive Date: 20090316
  Receipt Date: 20090302
  Transmission Date: 20090719
  Serious: No
  Sender: FDA-Public Use
  Company Number: US025572

PATIENT
  Age: 49 Year
  Sex: Female
  Weight: 68.9467 kg

DRUGS (6)
  1. FENTORA [Suspect]
     Indication: BACK PAIN
     Dosage: 400 UG QID BUCCAL
     Route: 002
     Dates: start: 20080301
  2. CHLORDIAZEPOXIDE [Concomitant]
  3. PROPRANOLOL [Concomitant]
  4. HYDROCHLOROTHIAZIDE [Concomitant]
  5. NOHIST [Concomitant]
  6. ALPRAZOLAM [Concomitant]

REACTIONS (2)
  - DRUG EFFECT DECREASED [None]
  - DRUG PRESCRIBING ERROR [None]
